FAERS Safety Report 8238664-7 (Version None)
Quarter: 2012Q1

REPORT INFORMATION
  Report Type: 
  Country: None (occurrence: None)
  Receive Date: 20120327
  Receipt Date: 20120322
  Transmission Date: 20120608
  Serious: Yes (Other)
  Sender: FDA-Public Use
  Company Number: US-TEVA-329457USA

PATIENT
  Sex: Female
  Weight: 103.06 kg

DRUGS (3)
  1. ALPRAZOLAM [Concomitant]
  2. SERTRALINE HYDROCHLORIDE [Concomitant]
     Indication: DEPRESSION
  3. PARAGARD T 380A [Suspect]
     Indication: CONTRACEPTION
     Route: 015
     Dates: start: 20120220, end: 20120227

REACTIONS (6)
  - FALLOPIAN TUBE DISORDER [None]
  - BREAST TENDERNESS [None]
  - ECTOPIC PREGNANCY [None]
  - METRORRHAGIA [None]
  - PREGNANCY WITH CONTRACEPTIVE DEVICE [None]
  - DRUG INEFFECTIVE [None]
